FAERS Safety Report 7965536-5 (Version None)
Quarter: 2011Q4

REPORT INFORMATION
  Report Type: 
  Country: None (occurrence: None)
  Receive Date: 20111208
  Receipt Date: 20111129
  Transmission Date: 20120403
  Serious: Yes (Other)
  Sender: FDA-Public Use
  Company Number: US-JNJFOC-20111201861

PATIENT
  Age: 46 Year
  Sex: Male
  Weight: 113.4 kg

DRUGS (1)
  1. INVEGA SUSTENNA [Suspect]
     Indication: BIPOLAR DISORDER
     Route: 030
     Dates: start: 20100101

REACTIONS (16)
  - WEIGHT INCREASED [None]
  - WHITE BLOOD CELL COUNT DECREASED [None]
  - POLLAKIURIA [None]
  - PSYCHOMOTOR HYPERACTIVITY [None]
  - BLOOD PRESSURE INCREASED [None]
  - CYST [None]
  - BLOOD CHOLESTEROL INCREASED [None]
  - TARDIVE DYSKINESIA [None]
  - CARDIAC DISORDER [None]
  - MENTAL IMPAIRMENT [None]
  - HYPOGLYCAEMIA [None]
  - ADVERSE EVENT [None]
  - SUICIDAL IDEATION [None]
  - SENSORY DISTURBANCE [None]
  - JUDGEMENT IMPAIRED [None]
  - THIRST [None]
